FAERS Safety Report 19895795 (Version 1)
Quarter: 2021Q3

REPORT INFORMATION
  Report Type: Spontaneous
  Country: US (occurrence: US)
  Receive Date: 20210929
  Receipt Date: 20210929
  Transmission Date: 20211014
  Serious: No
  Sender: FDA-Public Use
  Company Number: US-CELLTRION INC.-2021US006510

PATIENT

DRUGS (1)
  1. INFLECTRA [Suspect]
     Active Substance: INFLIXIMAB-DYYB
     Indication: CROHN^S DISEASE
     Dosage: 5 MG/KG, (MAINTENANCE DOSE)
     Route: 065
     Dates: start: 20210511

REACTIONS (3)
  - Unevaluable event [Unknown]
  - Condition aggravated [Unknown]
  - Haemorrhage [Unknown]
